FAERS Safety Report 7060461-9 (Version None)
Quarter: 2010Q4

REPORT INFORMATION
  Report Type: 
  Country: None (occurrence: None)
  Receive Date: 20101025
  Receipt Date: 20101022
  Transmission Date: 20110411
  Serious: Yes (Death, Life-Threatening, Hospitalization, Disabling, Other)
  Sender: FDA-Public Use
  Company Number: KR-B.I. PHARMACEUTICALS,INC./RIDGEFIELD-2010-BP-03728BP

PATIENT
  Sex: Male
  Weight: 66 kg

DRUGS (2)
  1. DABIGATRAN [Suspect]
     Indication: DEEP VEIN THROMBOSIS
     Dosage: 300 MG
     Route: 048
     Dates: start: 20100328, end: 20100329
  2. CLEXANE [Concomitant]
     Indication: DEEP VEIN THROMBOSIS
     Dosage: 120 MG
     Route: 058
     Dates: start: 20100309, end: 20100328

REACTIONS (7)
  - ANTIPHOSPHOLIPID SYNDROME [None]
  - BEHCET'S SYNDROME [None]
  - CEREBRAL INFARCTION [None]
  - DEEP VEIN THROMBOSIS [None]
  - HLA MARKER STUDY POSITIVE [None]
  - LUNG CANCER METASTATIC [None]
  - PULMONARY EMBOLISM [None]
